FAERS Safety Report 10868144 (Version 1)
Quarter: 2015Q1

REPORT INFORMATION
  Report Type: Spontaneous
  Country: US (occurrence: US)
  Receive Date: 20150225
  Receipt Date: 20150225
  Transmission Date: 20150721
  Serious: No
  Sender: FDA-Public Use
  Company Number: US-009507513-1502USA007087

PATIENT
  Sex: Female

DRUGS (1)
  1. ASMANEX [Suspect]
     Active Substance: MOMETASONE FUROATE
     Dosage: 220 MICROGRAM,/ ^ONE PUFF TWICE A DAY^
     Route: 055
     Dates: start: 20150207

REACTIONS (2)
  - Product quality issue [Unknown]
  - Incorrect dose administered [Unknown]
